FAERS Safety Report 20800121 (Version 1)
Quarter: 2022Q2

REPORT INFORMATION
  Report Type: Spontaneous
  Country: US (occurrence: US)
  Receive Date: 20220509
  Receipt Date: 20220509
  Transmission Date: 20220720
  Serious: Yes (Other)
  Sender: FDA-Public Use
  Company Number: US-BEIGENE USA INC-BGN-2022-004923

PATIENT

DRUGS (1)
  1. BRUKINSA [Suspect]
     Active Substance: ZANUBRUTINIB
     Indication: Waldenstrom^s macroglobulinaemia
     Dosage: 2 PILLS IN MORNING AND 2 PILLS IN EVENING

REACTIONS (5)
  - Haemarthrosis [Unknown]
  - Joint swelling [Unknown]
  - Peripheral swelling [Unknown]
  - Infection [Unknown]
  - Pain [Unknown]
